FAERS Safety Report 8054178-1 (Version None)
Quarter: 2012Q1

REPORT INFORMATION
  Report Type: 
  Country: None (occurrence: None)
  Receive Date: 20120118
  Receipt Date: 20120113
  Transmission Date: 20120608
  Serious: No
  Sender: FDA-Public Use
  Company Number: US-BAYER-2012-005550

PATIENT
  Age: 52 Year
  Sex: Female
  Weight: 95 kg

DRUGS (4)
  1. LISINOPRIL [Concomitant]
  2. NAPROXEN (ALEVE) [Suspect]
     Indication: PAIN
  3. NAPROXEN (ALEVE) [Suspect]
     Indication: ARTHRITIS
     Dosage: 2 DF, BID
     Route: 048
     Dates: start: 20100101, end: 20100101
  4. PREVACID [Concomitant]

REACTIONS (1)
  - PAIN [None]
